FAERS Safety Report 7621168-X (Version None)
Quarter: 2011Q3

REPORT INFORMATION
  Report Type: 
  Country: None (occurrence: None)
  Receive Date: 20110719
  Receipt Date: 20110713
  Transmission Date: 20111222
  Serious: Yes (Death, Hospitalization, Other)
  Sender: FDA-Public Use
  Company Number: PHNU2007DE02207

PATIENT
  Sex: Female
  Weight: 86 kg

DRUGS (1)
  1. ZOMETA [Suspect]
     Indication: METASTASES TO BONE
     Dosage: 4 MG / 5 ML EVERY 4 WEEKS
     Route: 042
     Dates: start: 20070122, end: 20070223

REACTIONS (19)
  - TACHYPNOEA [None]
  - URINARY TRACT INFECTION [None]
  - GASTROINTESTINAL HYPOMOTILITY [None]
  - AGRANULOCYTOSIS [None]
  - PANCREATITIS NECROTISING [None]
  - PANCREATIC PSEUDOCYST [None]
  - ESCHERICHIA INFECTION [None]
  - CIRCULATORY COLLAPSE [None]
  - C-REACTIVE PROTEIN INCREASED [None]
  - TACHYCARDIA [None]
  - NORMOCHROMIC NORMOCYTIC ANAEMIA [None]
  - ABDOMINAL PAIN [None]
  - RESPIRATORY FAILURE [None]
  - HYPOKALAEMIA [None]
  - ABDOMINAL ABSCESS [None]
  - INFECTIOUS PERITONITIS [None]
  - PNEUMONIA [None]
  - CHILLS [None]
  - RENAL FAILURE CHRONIC [None]
